FAERS Safety Report 6888659-0 (Version None)
Quarter: 2010Q3

REPORT INFORMATION
  Report Type: 
  Country: None (occurrence: None)
  Receive Date: 20100730
  Receipt Date: 20100726
  Transmission Date: 20110219
  Serious: Yes (Death)
  Sender: FDA-Public Use
  Company Number: US-AMGEN-KDC424764

PATIENT
  Age: 53 Year
  Sex: Female

DRUGS (1)
  1. ENBREL [Suspect]
     Indication: GRAFT VERSUS HOST DISEASE
     Dates: start: 20090609, end: 20090804

REACTIONS (1)
  - NON-HODGKIN'S LYMPHOMA RECURRENT [None]
